FAERS Safety Report 5013459-6 (Version None)
Quarter: 2006Q2

REPORT INFORMATION
  Report Type: 
  Country: None (occurrence: None)
  Receive Date: 20060530
  Receipt Date: 20060522
  Transmission Date: 20061013
  Serious: Yes (Hospitalization)
  Sender: FDA-Public Use
  Company Number: NL-SANOFI-SYNTHELABO-F01200601262

PATIENT
  Sex: Male

DRUGS (3)
  1. AVASTIN [Suspect]
     Indication: COLORECTAL CANCER
     Route: 041
     Dates: start: 20060501, end: 20060501
  2. CAPECITABINE [Suspect]
     Indication: COLORECTAL CANCER
     Dosage: DAYS 1-14 (1250 MG/M2 AFTER CYCLE 6) 4000 MG
     Route: 048
     Dates: start: 20060514
  3. OXALIPLATIN [Suspect]
     Indication: COLORECTAL CANCER
     Route: 041
     Dates: start: 20060501, end: 20060501

REACTIONS (4)
  - DEHYDRATION [None]
  - FLUID INTAKE REDUCED [None]
  - MALAISE [None]
  - RENAL FAILURE [None]
